FAERS Safety Report 21646867 (Version 1)
Quarter: 2022Q4

REPORT INFORMATION
  Report Type: Spontaneous
  Country: FR (occurrence: FR)
  Receive Date: 20221127
  Receipt Date: 20221127
  Transmission Date: 20230112
  Serious: Yes (Life-Threatening)
  Sender: FDA-Public Use
  Company Number: None

PATIENT
  Age: 68 Year
  Sex: Female
  Weight: 56 kg

DRUGS (7)
  1. ONDANSETRON HYDROCHLORIDE [Suspect]
     Active Substance: ONDANSETRON HYDROCHLORIDE
     Indication: Nausea
     Dosage: ONDANSETRON (CHLORHYDRATE D^) DIHYDRATE  , UNIT DOSE :  8 MG  , FREQUENCY TIME : 1 DAY  , DURATION :
     Dates: start: 20220928, end: 20221004
  2. POSACONAZOLE [Suspect]
     Active Substance: POSACONAZOLE
     Indication: Antifungal prophylaxis
     Dosage: UNIT DOSE : 300 MG  , FREQUENCY TIME :1 DAY   , DURATION :  9 DAYS
     Dates: start: 20220923, end: 20221002
  3. VENLAFAXINE HYDROCHLORIDE [Suspect]
     Active Substance: VENLAFAXINE HYDROCHLORIDE
     Indication: Depression
     Dosage: FORM STRENGTH : 37.5 MG  , UNIT DOSE : 37.5 MG  ,FREQUENCY TIME : 1 DAY , THERAPY START DATE : ASKU
     Dates: end: 20221003
  4. DESLORATADINE [Suspect]
     Active Substance: DESLORATADINE
     Indication: Product used for unknown indication
     Dosage: FORM STRENGTH : 5 MG , UNIT DOSE : 5 MG   , FREQUENCY TIME : 1 DAY  , DURATION : 10 DAY
     Dates: start: 20220922, end: 20221002
  5. ABECMA [Suspect]
     Active Substance: IDECABTAGENE VICLEUCEL
     Indication: Plasma cell myeloma
     Dosage: 260 - 500 X 1,000,000 CELLS, DISPERSION FOR INFUSION  , FREQUENCY TIME : 1 TOTAL , DURATION : 1 DAY
     Dates: start: 20221003, end: 20221003
  6. BACTRIM [Suspect]
     Active Substance: SULFAMETHOXAZOLE\TRIMETHOPRIM
     Indication: Opportunistic infection prophylaxis
     Dosage: 1CP MONDAY-WEDNESDAY-FRIDAY , UNIT DOSE : 1 DF , FREQUENCY TIME : 2 DAYS
  7. TOCILIZUMAB [Suspect]
     Active Substance: TOCILIZUMAB
     Indication: Cytokine release syndrome
     Dosage: FORM STRENGTH : 20 MG/ML  , UNIT DOSE : 440 MG , DURATION : 1 DAY
     Dates: start: 20221004, end: 20221004

REACTIONS (1)
  - Torsade de pointes [Recovered/Resolved]

NARRATIVE: CASE EVENT DATE: 20221004
